FAERS Safety Report 6182874-X (Version None)
Quarter: 2009Q2

REPORT INFORMATION
  Report Type: 
  Country: None (occurrence: None)
  Receive Date: 20090507
  Receipt Date: 20090504
  Transmission Date: 20091009
  Serious: Yes (Hospitalization)
  Sender: FDA-Public Use
  Company Number: US-BRISTOL-MYERS SQUIBB COMPANY-14610331

PATIENT
  Sex: Female

DRUGS (1)
  1. CISPLATIN [Suspect]

REACTIONS (1)
  - DYSPNOEA [None]
